FAERS Safety Report 7892635-9 (Version None)
Quarter: 2011Q4

REPORT INFORMATION
  Report Type: 
  Country: None (occurrence: None)
  Receive Date: 20111103
  Receipt Date: 20111012
  Transmission Date: 20120403
  Serious: Yes (Hospitalization)
  Sender: FDA-Public Use
  Company Number: 2011029358

PATIENT
  Age: 76 Year
  Sex: Female
  Weight: 61.2356 kg

DRUGS (37)
  1. HIZENTRA [Suspect]
  2. SERTRALINE HYDROCHLORIDE [Concomitant]
  3. MULTIVITAMIN (DAILY MULTIVITAMIN) [Concomitant]
  4. MAGNESIUM (MAGNESIUM) [Concomitant]
  5. BUDESONIDE [Concomitant]
  6. PERFORMIST (FORMOTEROL) [Concomitant]
  7. GLUCOSAMINE (GLUCOSAMINE) [Concomitant]
  8. NEXIUM [Concomitant]
  9. DUONEB [Concomitant]
  10. LEVOXYL [Concomitant]
  11. HIZENTRA [Suspect]
  12. BLACK COHOSH (CIMICIFUGA RACEMOSA ROOT) [Concomitant]
  13. PREDNISONE TAB [Concomitant]
  14. NASONEX [Concomitant]
  15. KEPPRA [Concomitant]
  16. HYCODAN (HYDROCODONE COMPOUND) [Concomitant]
  17. HIZENTRA [Suspect]
     Indication: IMMUNODEFICIENCY COMMON VARIABLE
     Dosage: 6 G 1X/WEEK, INFUSED 30 ML VIA MULTIPLE SITE SUBCUTANEOUS
     Route: 058
     Dates: start: 20110708
  18. HIZENTRA [Suspect]
     Indication: IMMUNODEFICIENCY COMMON VARIABLE
     Dosage: 6 G 1X/WEEK, INFUSED 30 ML VIA MULTIPLE SITE SUBCUTANEOUS
     Route: 058
     Dates: start: 20110906
  19. HIZENTRA [Suspect]
     Indication: IMMUNODEFICIENCY COMMON VARIABLE
     Dosage: 6 G 1X/WEEK, INFUSED 30 ML VIA MULTIPLE SITE SUBCUTANEOUS
     Route: 058
     Dates: start: 20110628
  20. HIZENTRA [Suspect]
     Indication: IMMUNODEFICIENCY COMMON VARIABLE
     Dosage: 6 G 1X/WEEK, INFUSED 30 ML VIA MULTIPLE SITE SUBCUTANEOUS
     Route: 058
     Dates: start: 20110819
  21. HIZENTRA [Suspect]
  22. ACETAMINOPHEN [Concomitant]
  23. MELATONIN (MELATONIN) [Concomitant]
  24. ZYRTEC [Concomitant]
  25. HIZENTRA [Suspect]
  26. SELENIUM (SELENIUM) [Concomitant]
  27. FISH OIL (FISH OIL) [Concomitant]
  28. COMBIVENT [Concomitant]
  29. ZANTAC [Concomitant]
  30. CALCIUM CARBONATE [Concomitant]
  31. MUCINEX [Concomitant]
  32. ADVAIR HFA [Concomitant]
  33. ASPIRIN [Concomitant]
  34. VITAMIN B COMPLEX (VITAMIN B) [Concomitant]
  35. HIZENTRA [Suspect]
  36. SINGULAIR [Concomitant]
  37. VITAMIN D [Concomitant]

REACTIONS (10)
  - FATIGUE [None]
  - NAUSEA [None]
  - ASTHENIA [None]
  - COUGH [None]
  - INFUSION SITE HAEMATOMA [None]
  - INFUSION SITE HAEMORRHAGE [None]
  - INFECTION [None]
  - INFUSION RELATED REACTION [None]
  - PYREXIA [None]
  - GASTROOESOPHAGEAL REFLUX DISEASE [None]
